FAERS Safety Report 9506507 (Version 1)
Quarter: 2013Q1

REPORT INFORMATION
  Report Type: Spontaneous
  Country: US (occurrence: None)
  Receive Date: 20130305
  Receipt Date: 20130305
  Transmission Date: 20140127
  Serious: Yes (Other)
  Sender: FDA-Public Use
  Company Number: 163-21880-12030415

PATIENT
  Age: 84 Year
  Sex: Female
  Weight: 60.33 kg

DRUGS (6)
  1. REVLIMID [Suspect]
     Indication: PLASMA CELL MYELOMA
     Dosage: 1 IN 1 D
     Route: 048
     Dates: start: 20111111
  2. ASA [Concomitant]
  3. LIPITOR [Concomitant]
  4. METOPROLOL XL [Concomitant]
  5. MVI [Concomitant]
  6. DIOVAN [Concomitant]

REACTIONS (5)
  - Anaemia [None]
  - Fatigue [None]
  - Abdominal pain upper [None]
  - Diarrhoea [None]
  - Pain in extremity [None]
